FAERS Safety Report 20087404 (Version 1)
Quarter: 2021Q4

REPORT INFORMATION
  Report Type: Spontaneous
  Country: US (occurrence: US)
  Receive Date: 20211118
  Receipt Date: 20211118
  Transmission Date: 20220303
  Serious: Yes (Hospitalization, Other)
  Sender: FDA-Public Use
  Company Number: US-FERRINGPH-2021FE07279

PATIENT
  Age: 39 Year
  Sex: Female

DRUGS (8)
  1. MENOPUR [Suspect]
     Active Substance: FOLLITROPIN\LUTEINIZING HORMONE
     Indication: Assisted reproductive technology
     Dosage: 150 IU, DAILY, FOR 10 DAYS
     Route: 065
  2. ENDOMETRIN [Suspect]
     Active Substance: PROGESTERONE
     Indication: Assisted reproductive technology
     Dosage: 100 MG, 3 TIMES DAILY
     Route: 067
  3. GONAL-F [Suspect]
     Active Substance: FOLLITROPIN
     Indication: Assisted reproductive technology
     Dosage: 150 IU, DAILY
     Route: 065
  4. CETROTIDE [Suspect]
     Active Substance: CETRORELIX ACETATE
     Indication: Assisted reproductive technology
     Dosage: 250 UG INITIATED ON DAY 5
     Route: 065
  5. LUPRON [Suspect]
     Active Substance: LEUPROLIDE ACETATE
     Indication: Assisted reproductive technology
     Dosage: 1 MG, ONCE/SINGLE ON DAY 10
     Route: 065
  6. ESTRACE [Suspect]
     Active Substance: ESTRADIOL
     Indication: Assisted reproductive technology
     Dosage: 2 MG, 3 TIMES DAILY
     Route: 048
  7. ESTRADIOL [Suspect]
     Active Substance: ESTRADIOL
     Indication: Assisted reproductive technology
     Dosage: 0.1 MG, DAILY, FOR 2 WEEKS
     Route: 003
  8. UNSPECIFIED INGREDIENT [Concomitant]
     Active Substance: UNSPECIFIED INGREDIENT
     Route: 048

REACTIONS (1)
  - Myelin oligodendrocyte glycoprotein antibody-associated disease [Recovering/Resolving]
